FAERS Safety Report 7795552-8 (Version None)
Quarter: 2011Q4

REPORT INFORMATION
  Report Type: 
  Country: None (occurrence: None)
  Receive Date: 20111004
  Receipt Date: 20110930
  Transmission Date: 20120403
  Serious: Yes (Hospitalization)
  Sender: FDA-Public Use
  Company Number: US-GLAXOSMITHKLINE-A0744009A

PATIENT
  Age: 43 Year
  Sex: Male
  Weight: 130.5 kg

DRUGS (19)
  1. SIMVASTATIN [Concomitant]
  2. ASPIRIN [Concomitant]
  3. CLONAZEPAM [Concomitant]
  4. FLUNISOLIDE [Concomitant]
  5. SIMVASTATIN [Concomitant]
  6. LISINOPRIL [Concomitant]
  7. CARVEDILOL [Concomitant]
  8. LISINOPRIL [Concomitant]
  9. FINASTERIDE [Concomitant]
  10. BELLADONNA [Concomitant]
  11. GEMFIBROZIL [Concomitant]
  12. AVANDIA [Suspect]
     Indication: TYPE 2 DIABETES MELLITUS
     Dosage: 4MG TWICE PER DAY
     Route: 048
     Dates: start: 19980101, end: 20070101
  13. METFORMIN HCL [Concomitant]
     Dates: start: 19990101, end: 19990101
  14. DIABETA [Concomitant]
     Dates: start: 19990101, end: 20080101
  15. TAMSULOSIN HCL [Concomitant]
  16. FINASTERIDE [Concomitant]
  17. GLYBURIDE [Concomitant]
  18. QUETIAPINE [Concomitant]
  19. ACETAMINOPHEN [Concomitant]

REACTIONS (5)
  - CARDIAC DISORDER [None]
  - WEIGHT INCREASED [None]
  - MYOCARDIAL INFARCTION [None]
  - HEART RATE IRREGULAR [None]
  - FLUID RETENTION [None]
